FAERS Safety Report 5841757-2 (Version None)
Quarter: 2008Q3

REPORT INFORMATION
  Report Type: 
  Country: None (occurrence: None)
  Receive Date: 20080811
  Receipt Date: 20080811
  Transmission Date: 20090109
  Serious: Yes (Other)
  Sender: FDA-Public Use
  Company Number: None

PATIENT
  Sex: Male
  Weight: 21.3191 kg

DRUGS (1)
  1. SINGULAIR [Suspect]
     Indication: ASTHMA
     Dosage: 4 MG EACH EVENING PO
     Route: 048
     Dates: start: 20031201, end: 20070101

REACTIONS (7)
  - ABNORMAL BEHAVIOUR [None]
  - ANXIETY DISORDER [None]
  - CONDUCT DISORDER [None]
  - DEPRESSION [None]
  - EMOTIONAL DISORDER [None]
  - SOCIAL AVOIDANT BEHAVIOUR [None]
  - SOCIAL PHOBIA [None]
